FAERS Safety Report 8407543-4 (Version None)
Quarter: 2012Q2

REPORT INFORMATION
  Report Type: 
  Country: None (occurrence: None)
  Receive Date: 20120604
  Receipt Date: 20120525
  Transmission Date: 20120825
  Serious: Yes (Hospitalization, Other)
  Sender: FDA-Public Use
  Company Number: DK-JNJFOC-20120512192

PATIENT
  Age: 28 Year
  Sex: Female
  Weight: 71 kg

DRUGS (4)
  1. AZATHIOPRINE [Concomitant]
     Indication: COLITIS ULCERATIVE
     Route: 048
     Dates: start: 20110314, end: 20120131
  2. HUMIRA [Concomitant]
     Indication: COLITIS ULCERATIVE
     Route: 058
     Dates: start: 20111021, end: 20111201
  3. REMICADE [Suspect]
     Indication: COLITIS ULCERATIVE
     Route: 042
     Dates: start: 20110415, end: 20110923
  4. MESALAMINE [Concomitant]
     Indication: COLITIS ULCERATIVE
     Route: 048
     Dates: end: 20120131

REACTIONS (2)
  - COLECTOMY [None]
  - ILEOSTOMY [None]
